FAERS Safety Report 13434943 (Version 1)
Quarter: 2017Q2

REPORT INFORMATION
  Report Type: Spontaneous
  Country: US (occurrence: US)
  Receive Date: 20170413
  Receipt Date: 20170413
  Transmission Date: 20170830
  Serious: Yes (Other)
  Sender: FDA-Public Use
  Company Number: US-TARO PHARMACEUTICALS USA.,INC-2017SUN00121

PATIENT
  Age: 62 Year
  Sex: Male

DRUGS (1)
  1. CLOBETASOL [Suspect]
     Active Substance: CLOBETASOL
     Indication: DERMATITIS CONTACT
     Dosage: UNK
     Route: 061

REACTIONS (9)
  - Condition aggravated [Recovered/Resolved]
  - Paraesthesia [None]
  - Steal syndrome [None]
  - Pain [Recovered/Resolved]
  - Finger amputation [None]
  - Skin ulcer [None]
  - Cyanosis [None]
  - Vasoconstriction [Recovered/Resolved]
  - Muscle atrophy [None]
